FAERS Safety Report 4966094-X (Version None)
Quarter: 2006Q2

REPORT INFORMATION
  Report Type: 
  Country: None (occurrence: None)
  Receive Date: 20060403
  Receipt Date: 20060322
  Transmission Date: 20061013
  Serious: Yes (Other)
  Sender: FDA-Public Use
  Company Number: 2006040592

PATIENT
  Sex: 0

DRUGS (4)
  1. SUDAFED 12 HOUR [Suspect]
     Indication: DRUG EXPOSURE DURING PREGNANCY
     Dosage: 1 - 2 DAILY, PLACENTAL
     Route: 064
     Dates: end: 20000628
  2. METFORMIN HCL [Suspect]
     Indication: DRUG EXPOSURE DURING PREGNANCY
     Dosage: 500 MG 3X/DAY, PLACENTAL
     Route: 064
     Dates: end: 20000628
  3. ACETAMINOPHEN [Suspect]
     Indication: DRUG EXPOSURE DURING PREGNANCY
     Dosage: AS NEEDED, PLACENTAL
     Route: 064
     Dates: end: 20000628
  4. GUAIFENESIN (GUAIFENESIN) [Suspect]
     Indication: DRUG EXPOSURE DURING PREGNANCY
     Dosage: AS NEEDED, PLACENTAL
     Route: 064
     Dates: end: 20000628

REACTIONS (3)
  - CAESAREAN SECTION [None]
  - DRUG EXPOSURE DURING PREGNANCY [None]
  - PREMATURE LABOUR [None]
